FAERS Safety Report 7497892-9 (Version None)
Quarter: 2011Q2

REPORT INFORMATION
  Report Type: 
  Country: None (occurrence: None)
  Receive Date: 20110524
  Receipt Date: 20110513
  Transmission Date: 20111010
  Serious: Yes (Hospitalization)
  Sender: FDA-Public Use
  Company Number: US-BIOGENIDEC-2010BI036487

PATIENT
  Age: 34 Year
  Sex: Female

DRUGS (2)
  1. TYSABRI [Suspect]
     Indication: MULTIPLE SCLEROSIS
     Route: 042
     Dates: start: 20080318
  2. AVONEX [Concomitant]
     Indication: MULTIPLE SCLEROSIS

REACTIONS (7)
  - MEMORY IMPAIRMENT [None]
  - CONVULSION [None]
  - MOBILITY DECREASED [None]
  - UROSEPSIS [None]
  - FLUID INTAKE REDUCED [None]
  - MULTIPLE SCLEROSIS [None]
  - ASTHENIA [None]
